FAERS Safety Report 5334068-5 (Version None)
Quarter: 2007Q2

REPORT INFORMATION
  Report Type: 
  Country: None (occurrence: None)
  Receive Date: 20070524
  Receipt Date: 20070515
  Transmission Date: 20071010
  Serious: Yes (Other)
  Sender: FDA-Public Use
  Company Number: GB-PFIZER INC-2007040678

PATIENT

DRUGS (3)
  1. PHENYTOIN [Suspect]
  2. OMEPRAZOLE [Suspect]
     Indication: VOMITING
  3. MIDAZOLAM HCL [Concomitant]

REACTIONS (5)
  - DYSKINESIA [None]
  - LETHARGY [None]
  - UNRESPONSIVE TO STIMULI [None]
  - URINARY TRACT INFECTION [None]
  - VOMITING [None]
